FAERS Safety Report 4532658-0 (Version None)
Quarter: 2004Q4

REPORT INFORMATION
  Report Type: 
  Country: None (occurrence: None)
  Receive Date: 20041221
  Receipt Date: 20040715
  Transmission Date: 20050328
  Serious: Yes (Hospitalization)
  Sender: FDA-Public Use
  Company Number: PHNU2004DE02527

PATIENT
  Sex: Male

DRUGS (2)
  1. ELIDEL [Suspect]
     Indication: DERMATITIS ATOPIC
     Dosage: UNK, UNK
     Route: 061
     Dates: start: 20040601
  2. EMOLLIENTS AND PROTECTIVES [Concomitant]

REACTIONS (2)
  - FEBRILE CONVULSION [None]
  - VARICELLA [None]
